FAERS Safety Report 7079320-0 (Version None)
Quarter: 2010Q4

REPORT INFORMATION
  Report Type: 
  Country: None (occurrence: None)
  Receive Date: 20101102
  Receipt Date: 20100302
  Transmission Date: 20110411
  Serious: Yes (Hospitalization)
  Sender: FDA-Public Use
  Company Number: A0838306A

PATIENT
  Age: 71 Year
  Sex: Female

DRUGS (12)
  1. RYTHMOL SR [Suspect]
     Indication: ATRIAL FIBRILLATION
     Dosage: 225MG TWICE PER DAY
     Route: 048
     Dates: start: 20050501
  2. LISINOPRIL [Concomitant]
  3. FUROSEMIDE [Concomitant]
  4. XANAX [Concomitant]
  5. ZOLOFT [Concomitant]
  6. WARFARIN [Concomitant]
  7. SINGULAIR [Concomitant]
  8. CALCIUM [Concomitant]
  9. VITAMIN D [Concomitant]
  10. POTASSIUM CHLORIDE [Concomitant]
  11. MINERAL OIL [Concomitant]
  12. VITAMIN TAB [Concomitant]

REACTIONS (2)
  - ARRHYTHMIA [None]
  - BLOOD PRESSURE INCREASED [None]
